FAERS Safety Report 19035949 (Version 2)
Quarter: 2021Q1

REPORT INFORMATION
  Report Type: Spontaneous
  Country: NL (occurrence: NL)
  Receive Date: 20210321
  Receipt Date: 20210326
  Transmission Date: 20210420
  Serious: Yes (Other)
  Sender: FDA-Public Use
  Company Number: NL-TEVA-2021-NL-1891344

PATIENT
  Sex: Male
  Weight: 72 kg

DRUGS (2)
  1. MESALAZINE TABLET MGA  500MG / PENTASA TABLET MVA 500MG [Concomitant]
     Dosage: 500 MG (MILLIGRAM),THERAPY START DATE ASKU, THERAPY END DATE ASKU
  2. PANTOPRAZOL TABLET MSR 40MG / BRAND NAME NOT SPECIFIED [Suspect]
     Active Substance: PANTOPRAZOLE
     Indication: DYSPEPSIA
     Dosage: 40 MILLIGRAM DAILY;
     Dates: start: 202012, end: 20210111

REACTIONS (1)
  - Colitis ulcerative [Not Recovered/Not Resolved]
